FAERS Safety Report 6341357-4 (Version None)
Quarter: 2009Q3

REPORT INFORMATION
  Report Type: 
  Country: None (occurrence: None)
  Receive Date: 20090904
  Receipt Date: 20090901
  Transmission Date: 20100115
  Serious: Yes (Death)
  Sender: FDA-Public Use
  Company Number: PHHY2009BR37206

PATIENT
  Sex: Female

DRUGS (3)
  1. EXELON [Suspect]
     Dosage: 9MG/5CM2
     Route: 062
  2. MONOCORDIL [Concomitant]
     Dosage: UNK
  3. EUTHYROX [Concomitant]
     Dosage: UNK

REACTIONS (1)
  - CARDIAC ARREST [None]
